FAERS Safety Report 24277934 (Version 1)
Quarter: 2024Q3

REPORT INFORMATION
  Report Type: Report from Study
  Country: CN (occurrence: CN)
  Receive Date: 20240903
  Receipt Date: 20240903
  Transmission Date: 20241017
  Serious: Yes (Other)
  Sender: ACCORD
  Company Number: CN-HENLIUS-21CN003739

PATIENT
  Age: 62 Year
  Sex: Female
  Weight: 61.7 kg

DRUGS (37)
  1. DOCETAXEL [Suspect]
     Active Substance: DOCETAXEL\DOCETAXEL ANHYDROUS
     Indication: Breast cancer stage III
     Dosage: QD
     Route: 042
     Dates: start: 20211113, end: 20211113
  2. CAPECITABINE [Suspect]
     Active Substance: CAPECITABINE
     Indication: Breast cancer stage III
     Dosage: 1.5 GRAM, BID
     Route: 048
     Dates: start: 20211112
  3. PACLITAXEL [Suspect]
     Active Substance: PACLITAXEL
     Indication: Breast cancer stage III
     Dosage: 100 MILLIGRAM, QD
     Route: 042
     Dates: start: 20220114, end: 20220114
  4. TRASTUZUMAB [Suspect]
     Active Substance: TRASTUZUMAB
     Indication: Breast cancer stage III
     Dosage: 450 MILLIGRAM, Q3W
     Route: 042
     Dates: start: 20211113, end: 20211113
  5. DIPHENHYDRAMINE [Concomitant]
     Active Substance: DIPHENHYDRAMINE
     Indication: Antiemetic supportive care
     Dosage: 20 MILLIGRAM, QD
     Route: 030
     Dates: start: 20211113, end: 20211116
  6. METOCLOPRAMIDE [Concomitant]
     Active Substance: METOCLOPRAMIDE
     Indication: Neoadjuvant therapy
     Dosage: 10 MILLIGRAM, QD
     Route: 030
     Dates: start: 20211113, end: 20211116
  7. DOLASETRON MESYLATE [Concomitant]
     Active Substance: DOLASETRON MESYLATE
     Indication: Antiemetic supportive care
     Dosage: 100 MILLIGRAM, QD
     Route: 042
     Dates: start: 20211113, end: 20211116
  8. ROXATIDINE ACETATE HYDROCHLORIDE [Concomitant]
     Active Substance: ROXATIDINE ACETATE HYDROCHLORIDE
     Indication: Adjuvant therapy
     Dosage: 75 MILLIGRAM, BID
     Route: 042
     Dates: start: 20211113, end: 20211116
  9. SODIUM ACETATE [Concomitant]
     Active Substance: SODIUM ACETATE
     Indication: Fluid replacement
     Dosage: 500 MILLILITER, QD
     Route: 042
     Dates: start: 20211113, end: 20211116
  10. STERILE WATER [Concomitant]
     Active Substance: WATER
     Indication: Catheter management
     Dosage: 10 MILLILITER, QD
     Route: 042
     Dates: start: 20211112, end: 20211112
  11. HEPARIN SODIUM [Concomitant]
     Active Substance: HEPARIN SODIUM
     Indication: Catheter management
     Dosage: 5 MILLILITER, QD
     Dates: start: 20211113, end: 20211113
  12. LIDOCAINE HYDROCHLORIDE [Concomitant]
     Active Substance: LIDOCAINE HYDROCHLORIDE
     Indication: Local anaesthesia
     Dosage: 0.1 GRAM, QD
     Route: 030
     Dates: start: 20211113, end: 20211113
  13. DEXAMETHASONE [Concomitant]
     Active Substance: DEXAMETHASONE
     Indication: Adjuvant therapy
     Dosage: 75 MILLIGRAM, QD
     Route: 048
     Dates: start: 20211113, end: 20211113
  14. GRANULOCYTE COLONY STIMULATING FACT [Concomitant]
     Indication: White blood cell count decreased
     Dosage: 450 MICROGRAM, QD
     Route: 058
     Dates: start: 20211115, end: 20211115
  15. DEXAMETHASONE SODIUM PHOSPHATE [Concomitant]
     Active Substance: DEXAMETHASONE PHOSPHATE\DEXAMETHASONE SODIUM PHOSPHATE
     Indication: Neoadjuvant therapy
     Dosage: 5 MILLIGRAM, QD
     Route: 042
     Dates: start: 20211111, end: 20211114
  16. DIISOPROPYLAMINE DICHLOROACETATE [Concomitant]
     Indication: Hepatobiliary disorder prophylaxis
     Dosage: 1 VIAL, BID
     Route: 042
     Dates: start: 20211112, end: 20211116
  17. ENOXAPARIN SODIUM [Concomitant]
     Active Substance: ENOXAPARIN SODIUM
     Indication: Thrombosis prophylaxis
     Dosage: 6000 INTERNATIONAL UNIT, QD
     Route: 058
     Dates: start: 20211112, end: 20211116
  18. LIDOCAINE HYDROCHLORIDE [Concomitant]
     Active Substance: LIDOCAINE HYDROCHLORIDE
     Indication: Local anaesthesia
     Dosage: 0.1 GRAM, QD
     Route: 030
     Dates: start: 20211208, end: 20211208
  19. DEXAMETHASONE [Concomitant]
     Active Substance: DEXAMETHASONE
     Indication: Adjuvant therapy
     Dosage: 7.5 MILLIGRAM, BID
     Route: 048
     Dates: start: 20211208, end: 20211210
  20. TRASTUZUMAB [Suspect]
     Active Substance: TRASTUZUMAB
     Indication: Breast cancer stage III
     Dosage: 150 MILLIGRAM, Q3W
     Route: 042
     Dates: start: 20211209, end: 20211209
  21. TRASTUZUMAB [Suspect]
     Active Substance: TRASTUZUMAB
     Indication: Breast cancer stage III
     Dosage: 150 MILLIGRAM, Q3W
     Route: 042
     Dates: start: 20220114, end: 20220114
  22. TRASTUZUMAB [Suspect]
     Active Substance: TRASTUZUMAB
     Indication: Breast cancer stage III
     Dosage: 150 MILLIGRAM, Q3W
     Route: 042
     Dates: start: 20220216, end: 20220216
  23. TRASTUZUMAB [Suspect]
     Active Substance: TRASTUZUMAB
     Indication: Breast cancer stage III
     Dosage: 150 MILLIGRAM, Q3W
     Route: 042
     Dates: start: 20220425, end: 20220425
  24. TRASTUZUMAB [Suspect]
     Active Substance: TRASTUZUMAB
     Indication: Breast cancer stage III
     Dosage: 150 MILLIGRAM, Q3W
     Route: 042
     Dates: start: 20220521, end: 20220521
  25. ENOXAPARIN SODIUM [Concomitant]
     Active Substance: ENOXAPARIN SODIUM
     Indication: Thrombosis prophylaxis
     Dosage: 6000 INTERNATIONAL UNIT, QD
     Route: 058
     Dates: start: 20211112, end: 20211210
  26. DIPHENHYDRAMINE [Concomitant]
     Active Substance: DIPHENHYDRAMINE
     Indication: Antiemetic supportive care
     Dosage: 20 MILLIGRAM, QD
     Route: 030
     Dates: start: 20211209, end: 20211209
  27. DOLASETRON MESYLATE [Concomitant]
     Active Substance: DOLASETRON MESYLATE
     Indication: Antiemetic supportive care
     Dosage: 100 MILLIGRAM, QD
     Route: 042
     Dates: start: 20211209, end: 20211209
  28. ROXATIDINE ACETATE HYDROCHLORIDE [Concomitant]
     Active Substance: ROXATIDINE ACETATE HYDROCHLORIDE
     Indication: Adjuvant therapy
     Dosage: 75 MILLIGRAM, BID
     Route: 042
     Dates: start: 20211209, end: 20211209
  29. SODIUM ACETATE [Concomitant]
     Active Substance: SODIUM ACETATE
     Indication: Fluid replacement
     Dosage: 500 MILLILITER, QD
     Route: 042
     Dates: start: 20211209, end: 20211209
  30. HEPARIN SODIUM [Concomitant]
     Active Substance: HEPARIN SODIUM
     Indication: Catheter management
     Dosage: 5 MILLILITER, QD
     Dates: start: 20211208, end: 20211208
  31. DOCETAXEL [Suspect]
     Active Substance: DOCETAXEL\DOCETAXEL ANHYDROUS
     Indication: Breast cancer stage III
     Dosage: 100 MILLIGRAM, QD
     Dates: start: 20211209, end: 20211209
  32. PACLITAXEL [Suspect]
     Active Substance: PACLITAXEL
     Indication: Breast cancer stage III
     Dosage: 100 MILLIGRAM, Q3W
     Route: 042
     Dates: start: 20220215, end: 20220215
  33. PACLITAXEL [Suspect]
     Active Substance: PACLITAXEL
     Indication: Breast cancer stage III
     Dosage: 100 MILLIGRAM, Q3W
     Route: 042
     Dates: start: 20220311, end: 20220311
  34. PACLITAXEL [Suspect]
     Active Substance: PACLITAXEL
     Indication: Breast cancer stage III
     Dosage: 100 MILLIGRAM, Q3W
     Route: 042
     Dates: start: 20220403, end: 20220403
  35. PACLITAXEL [Suspect]
     Active Substance: PACLITAXEL
     Indication: Breast cancer stage III
     Dosage: 100 MILLIGRAM, Q3W
     Route: 042
     Dates: start: 20220425, end: 20220425
  36. DEXAMETHASONE SODIUM PHOSPHATE [Concomitant]
     Active Substance: DEXAMETHASONE PHOSPHATE\DEXAMETHASONE SODIUM PHOSPHATE
     Indication: Neoadjuvant therapy
     Dosage: 10 MILLIGRAM, QD
     Route: 042
     Dates: start: 20211113, end: 20211115
  37. DEXAMETHASONE SODIUM PHOSPHATE [Concomitant]
     Active Substance: DEXAMETHASONE PHOSPHATE\DEXAMETHASONE SODIUM PHOSPHATE
     Indication: Neoadjuvant therapy
     Dosage: 10 MILLIGRAM, QD
     Route: 042
     Dates: start: 20211209, end: 20211209

REACTIONS (5)
  - Myelosuppression [Recovering/Resolving]
  - Neutrophil count decreased [Recovering/Resolving]
  - White blood cell count decreased [Recovering/Resolving]
  - Taste disorder [Recovered/Resolved]
  - Arrhythmia supraventricular [Recovered/Resolved]

NARRATIVE: CASE EVENT DATE: 20211119
